FAERS Safety Report 10435205 (Version 4)
Quarter: 2017Q3

REPORT INFORMATION
  Report Type: Report from Study
  Country: JP (occurrence: JP)
  Receive Date: 20140907
  Receipt Date: 20170714
  Transmission Date: 20171127
  Serious: Yes (Hospitalization)
  Sender: FDA-Public Use
  Company Number: PHHY2013JP162161

PATIENT
  Age: 2 Year
  Sex: Male

DRUGS (6)
  1. ILARIS [Suspect]
     Active Substance: CANAKINUMAB
     Indication: MUCKLE-WELLS SYNDROME
     Dosage: (AT 4MG/KG )45 MG, UNK
     Route: 058
     Dates: start: 20130606
  2. ILARIS [Suspect]
     Active Substance: CANAKINUMAB
     Dosage: 75 MG, UNK (AT 6MG/KG )
     Route: 058
     Dates: start: 20130626
  3. AMPICILLIN+SULBACTAM [Concomitant]
     Active Substance: AMPICILLIN SODIUM\SULBACTAM SODIUM
     Indication: LYMPHADENITIS BACTERIAL
     Dosage: UNK
     Route: 065
  4. ILARIS [Suspect]
     Active Substance: CANAKINUMAB
     Indication: CRYOPYRIN ASSOCIATED PERIODIC SYNDROME
     Dosage: 30 MG, UNK
     Route: 058
     Dates: start: 20130530
  5. ILARIS [Suspect]
     Active Substance: CANAKINUMAB
     Dosage: 96 MG, UNK
     Route: 058
     Dates: start: 20131018
  6. ILARIS [Suspect]
     Active Substance: CANAKINUMAB
     Dosage: 96 MG, UNK
     Route: 058
     Dates: start: 20130821

REACTIONS (5)
  - Therapy non-responder [Unknown]
  - Inflammation [Recovered/Resolved]
  - Lymphadenitis bacterial [Unknown]
  - C-reactive protein increased [Recovered/Resolved]
  - Serum amyloid A protein increased [Recovered/Resolved]

NARRATIVE: CASE EVENT DATE: 201306
